FAERS Safety Report 5188889-2 (Version None)
Quarter: 2006Q4

REPORT INFORMATION
  Report Type: 
  Country: None (occurrence: None)
  Receive Date: 20061215
  Receipt Date: 20061204
  Transmission Date: 20070319
  Serious: Yes (Death, Other)
  Sender: FDA-Public Use
  Company Number: 2005007511

PATIENT
  Age: 56 Year
  Sex: Female
  Weight: 88.905 kg

DRUGS (5)
  1. NEURONTIN [Suspect]
     Indication: TRIGEMINAL NEURALGIA
     Dosage: 600 GM (300 MG, 2 IN 1 D), ORAL
     Route: 048
     Dates: start: 19990201
  2. TRILEPTAL [Concomitant]
  3. PREVACID [Concomitant]
  4. AMITRIPTYLINE HCL [Concomitant]
  5. ULTRACET [Concomitant]

REACTIONS (9)
  - AMNESIA [None]
  - COMPLETED SUICIDE [None]
  - DEAFNESS [None]
  - DEPRESSION [None]
  - DRUG INEFFECTIVE [None]
  - GUN SHOT WOUND [None]
  - HEAD INJURY [None]
  - HYPOAESTHESIA [None]
  - SUICIDAL IDEATION [None]
